FAERS Safety Report 9793126 (Version 1)
Quarter: 2014Q1

REPORT INFORMATION
  Report Type: Report from Study
  Country: CA (occurrence: CA)
  Receive Date: 20140102
  Receipt Date: 20140102
  Transmission Date: 20141002
  Serious: Yes (Hospitalization)
  Sender: FDA-Public Use
  Company Number: CA-JNJFOC-20131217622

PATIENT
  Age: 56 Year
  Sex: Female
  Weight: 72 kg

DRUGS (6)
  1. REMICADE [Suspect]
     Indication: CROHN^S DISEASE
     Route: 042
     Dates: start: 20131230
  2. REMICADE [Suspect]
     Indication: CROHN^S DISEASE
     Route: 042
     Dates: start: 20130510
  3. IMURAN [Concomitant]
     Dosage: DAILY
     Route: 065
  4. ZANTAC [Concomitant]
     Dosage: DAILY
     Route: 065
  5. QUESTRAN [Concomitant]
     Route: 065
  6. CALCIUM [Concomitant]
     Route: 065

REACTIONS (4)
  - Renal colic [Unknown]
  - Pneumonia aspiration [Unknown]
  - Skin lesion [Unknown]
  - Hyperaesthesia [Unknown]
